FAERS Safety Report 22589165 (Version 1)
Quarter: 2023Q2

REPORT INFORMATION
  Report Type: Report from Study
  Country: CA (occurrence: CA)
  Receive Date: 20230612
  Receipt Date: 20230612
  Transmission Date: 20230721
  Serious: Yes (Other)
  Sender: FDA-Public Use
  Company Number: CA-GILEAD-2022-0601690

PATIENT
  Age: 58 Year
  Sex: Female

DRUGS (57)
  1. SACITUZUMAB GOVITECAN-HZIY [Suspect]
     Active Substance: SACITUZUMAB GOVITECAN-HZIY
     Indication: Triple negative breast cancer
     Dosage: 790 MG
     Route: 042
  2. SACITUZUMAB GOVITECAN-HZIY [Suspect]
     Active Substance: SACITUZUMAB GOVITECAN-HZIY
     Dosage: 670 MG
     Route: 042
     Dates: start: 20220826
  3. SACITUZUMAB GOVITECAN-HZIY [Suspect]
     Active Substance: SACITUZUMAB GOVITECAN-HZIY
     Dosage: UNSPECIFIED CYCLE D1, D8
     Route: 042
     Dates: start: 20230119, end: 20230126
  4. SACITUZUMAB GOVITECAN-HZIY [Suspect]
     Active Substance: SACITUZUMAB GOVITECAN-HZIY
     Dosage: C1D8
     Route: 042
     Dates: start: 20230216, end: 20230216
  5. SACITUZUMAB GOVITECAN-HZIY [Suspect]
     Active Substance: SACITUZUMAB GOVITECAN-HZIY
     Dosage: C1D1
     Route: 042
     Dates: start: 20230302
  6. SACITUZUMAB GOVITECAN-HZIY [Suspect]
     Active Substance: SACITUZUMAB GOVITECAN-HZIY
     Dosage: 670 MG
     Route: 042
     Dates: start: 20220826
  7. TAXOL [Concomitant]
     Active Substance: PACLITAXEL
  8. ACETAMINOPHEN [Concomitant]
     Active Substance: ACETAMINOPHEN
     Dosage: 650 MG PO (PRE-MEDICATION PRIOR TO TRODELVY)
  9. ACETAMINOPHEN [Concomitant]
     Active Substance: ACETAMINOPHEN
     Dosage: 650 MG PO (PRE-MEDICATION PRIOR TO TRODELVY)
  10. ACETAMINOPHEN [Concomitant]
     Active Substance: ACETAMINOPHEN
     Dosage: 650 MG PO (PRE-MEDICATION PRIOR TO TRODELVY
  11. ACETAMINOPHEN [Concomitant]
     Active Substance: ACETAMINOPHEN
     Dosage: 650 MG PO (PRE-MEDICATION PRIOR TO TRODELVY)
  12. ACETAMINOPHEN [Concomitant]
     Active Substance: ACETAMINOPHEN
     Dosage: 650 MG PO (PRE-MEDICATION PRIOR TO TRODELVY)
  13. ACETAMINOPHEN [Concomitant]
     Active Substance: ACETAMINOPHEN
     Dosage: 650 MG PO (PRE-MEDICATION PRIOR TO TRODELVY)
  14. ACETAMINOPHEN [Concomitant]
     Active Substance: ACETAMINOPHEN
     Dosage: 650 MG PO (PRE-MEDICATION PRIOR TO TRODELVY)
  15. ACETAMINOPHEN [Concomitant]
     Active Substance: ACETAMINOPHEN
     Dosage: 650 MG PO (PRE-MEDICATION PRIOR TO TRODELVY)
  16. ACETAMINOPHEN [Concomitant]
     Active Substance: ACETAMINOPHEN
     Dosage: 650 MG PO (PRE-MEDICATION PRIOR TO TRODELVY)
  17. ACETAMINOPHEN [Concomitant]
     Active Substance: ACETAMINOPHEN
     Dosage: 650 MG PO (PRE-MEDICATION PRIOR TO TRODELVY)
  18. ACETAMINOPHEN [Concomitant]
     Active Substance: ACETAMINOPHEN
     Dosage: 650 MG PO (PRE-MEDICATION PRIOR TO TRODELVY)
  19. DIPHENHYDRAMINE [Concomitant]
     Active Substance: DIPHENHYDRAMINE
     Dosage: 50 MG PO (PRE-MEDICATION PRIOR TO TRODELVY)
  20. DIPHENHYDRAMINE [Concomitant]
     Active Substance: DIPHENHYDRAMINE
     Dosage: 50 MG PO (PRE-MEDICATION PRIOR TO TRODELVY)
  21. DIPHENHYDRAMINE [Concomitant]
     Active Substance: DIPHENHYDRAMINE
     Dosage: 50 MG PO (PRE-MEDICATION PRIOR TO TRODELVY)
  22. DIPHENHYDRAMINE [Concomitant]
     Active Substance: DIPHENHYDRAMINE
     Dosage: 50 MG PO (PRE-MEDICATION PRIOR TO TRODELVY)
  23. DIPHENHYDRAMINE [Concomitant]
     Active Substance: DIPHENHYDRAMINE
     Dosage: 50 MG PO (PRE-MEDICATION PRIOR TO TRODELVY)
  24. DIPHENHYDRAMINE [Concomitant]
     Active Substance: DIPHENHYDRAMINE
     Dosage: 50 MG PO (PRE-MEDICATION PRIOR TO TRODELVY)
  25. DIPHENHYDRAMINE [Concomitant]
     Active Substance: DIPHENHYDRAMINE
     Dosage: 50 MG PO (PRE-MEDICATION PRIOR TO TRODELVY)
  26. DIPHENHYDRAMINE [Concomitant]
     Active Substance: DIPHENHYDRAMINE
     Dosage: 50 MG PO (PRE-MEDICATION PRIOR TO TRODELVY)
  27. DIPHENHYDRAMINE [Concomitant]
     Active Substance: DIPHENHYDRAMINE
     Dosage: 50 MG PO (PRE-MEDICATION PRIOR TO TRODELVY)
  28. DIPHENHYDRAMINE [Concomitant]
     Active Substance: DIPHENHYDRAMINE
     Dosage: 50 MG PO (PRE-MEDICATION PRIOR TO TRODELVY)
  29. DIPHENHYDRAMINE [Concomitant]
     Active Substance: DIPHENHYDRAMINE
     Dosage: 50 MG PO (PRE-MEDICATION PRIOR TO TRODELVY)
  30. DEXAMETHASONE [Concomitant]
     Active Substance: DEXAMETHASONE
     Dosage: 8 MG PO (PRE-MEDICATION PRIOR TO TRODELVY)
  31. DEXAMETHASONE [Concomitant]
     Active Substance: DEXAMETHASONE
     Dosage: 8 MG PO (PRE-MEDICATION PRIOR TO TRODELVY)
  32. DEXAMETHASONE [Concomitant]
     Active Substance: DEXAMETHASONE
     Dosage: 8 MG PO (PRE-MEDICATION PRIOR TO TRODELVY)
  33. DEXAMETHASONE [Concomitant]
     Active Substance: DEXAMETHASONE
     Dosage: 8 MG PO (PRE-MEDICATION PRIOR TO TRODELVY)
  34. DEXAMETHASONE [Concomitant]
     Active Substance: DEXAMETHASONE
     Dosage: 8 MG PO (PRE-MEDICATION PRIOR TO TRODELVY)
  35. DEXAMETHASONE [Concomitant]
     Active Substance: DEXAMETHASONE
     Dosage: 8 MG PO (PRE-MEDICATION PRIOR TO TRODELVY)
  36. DEXAMETHASONE [Concomitant]
     Active Substance: DEXAMETHASONE
     Dosage: 8 MG PO (PRE-MEDICATION PRIOR TO TRODELVY)
  37. KEYTRUDA [Concomitant]
     Active Substance: PEMBROLIZUMAB
  38. GRANISETRON [Concomitant]
     Active Substance: GRANISETRON
     Dosage: 2 MG PO (PRE-MEDICATION PRIOR TO TRODELVY)
  39. GRANISETRON [Concomitant]
     Active Substance: GRANISETRON
     Dosage: 2 MG PO (PRE-MEDICATION PRIOR TO TRODELVY)
  40. GRANISETRON [Concomitant]
     Active Substance: GRANISETRON
     Dosage: 2 MG PO (PRE-MEDICATION PRIOR TO TRODELVY)
  41. GRANISETRON [Concomitant]
     Active Substance: GRANISETRON
     Dosage: 2 MG PO (PRE-MEDICATION PRIOR TO TRODELVY)
  42. GRANISETRON [Concomitant]
     Active Substance: GRANISETRON
     Dosage: 2 MG PO (PRE-MEDICATION PRIOR TO TRODELVY)
  43. GRANISETRON [Concomitant]
     Active Substance: GRANISETRON
     Dosage: 2 MG PO (PRE-MEDICATION PRIOR TO TRODELVY)
  44. OLANZAPINE [Concomitant]
     Active Substance: OLANZAPINE
     Dosage: 2.5 MG PO (PRE-MEDICATION PRIOR TO TRODELVY)
  45. OLANZAPINE [Concomitant]
     Active Substance: OLANZAPINE
     Dosage: 2.5 MG PO (PRE-MEDICATION PRIOR TO TRODELVY)
  46. OLANZAPINE [Concomitant]
     Active Substance: OLANZAPINE
     Dosage: 2.5 MG PO (PRE-MEDICATION PRIOR TO TRODELVY)
  47. OLANZAPINE [Concomitant]
     Active Substance: OLANZAPINE
     Dosage: 2.5 MG PO (PRE-MEDICATION PRIOR TO TRODELVY)
  48. OLANZAPINE [Concomitant]
     Active Substance: OLANZAPINE
     Dosage: 2.5 MG PO (PRE-MEDICATION PRIOR TO TRODELVY)
  49. OLANZAPINE [Concomitant]
     Active Substance: OLANZAPINE
     Dosage: 2.5 MG PO (PRE-MEDICATION PRIOR TO TRODELVY)
  50. ONDANSETRON [Concomitant]
     Active Substance: ONDANSETRON
     Dosage: 40 MG PO (PRE-MEDICATION PRIOR TO TRODELVY)
  51. ONDANSETRON [Concomitant]
     Active Substance: ONDANSETRON
     Dosage: 40 MG PO (PRE-MEDICATION PRIOR TO TRODELVY)
  52. ONDANSETRON [Concomitant]
     Active Substance: ONDANSETRON
     Dosage: 40 MG PO (PRE-MEDICATION PRIOR TO TRODELVY)
  53. ONDANSETRON [Concomitant]
     Active Substance: ONDANSETRON
     Dosage: 40 MG PO (PRE-MEDICATION PRIOR TO TRODELVY)
  54. FAMOTIDINE [Concomitant]
     Active Substance: FAMOTIDINE
     Dosage: 40 MG PO (PRE-MEDICATION PRIOR TO TRODELVY)
  55. FAMOTIDINE [Concomitant]
     Active Substance: FAMOTIDINE
     Dosage: 40 MG PO (PRE-MEDICATION PRIOR TO TRODELVY)
  56. FAMOTIDINE [Concomitant]
     Active Substance: FAMOTIDINE
     Dosage: 40 MG PO (PRE-MEDICATION PRIOR TO TRODELVY)
  57. FAMOTIDINE [Concomitant]
     Active Substance: FAMOTIDINE
     Dosage: 40 MG PO (PRE-MEDICATION PRIOR TO TRODELVY)

REACTIONS (16)
  - Disease progression [Not Recovered/Not Resolved]
  - Weight fluctuation [Unknown]
  - Weight fluctuation [Unknown]
  - Weight fluctuation [Unknown]
  - Weight fluctuation [Not Recovered/Not Resolved]
  - Weight fluctuation [Unknown]
  - Malaise [Recovered/Resolved]
  - Pyrexia [Recovered/Resolved]
  - Chills [Recovered/Resolved]
  - Vomiting [Recovered/Resolved]
  - Weight decreased [Not Recovered/Not Resolved]
  - Inappropriate schedule of product administration [Unknown]
  - Inappropriate schedule of product administration [Unknown]
  - Inappropriate schedule of product administration [Unknown]
  - Inappropriate schedule of product administration [Unknown]
  - Inappropriate schedule of product administration [Unknown]

NARRATIVE: CASE EVENT DATE: 20221001
